FAERS Safety Report 9680901 (Version 1)
Quarter: 2013Q4

REPORT INFORMATION
  Report Type: Spontaneous
  Country: None (occurrence: CA)
  Receive Date: 20131111
  Receipt Date: 20131111
  Transmission Date: 20140711
  Serious: Yes (Life-Threatening, Other)
  Sender: FDA-Public Use
  Company Number: CA-ASTELLAS-2013US011491

PATIENT
  Age: 53 Year
  Sex: Male

DRUGS (2)
  1. MYRBETRIQ [Suspect]
     Indication: HYPERTONIC BLADDER
     Dosage: 25 MG, UID/QD
     Route: 048
     Dates: start: 20131008, end: 20131017
  2. UNSPECIFIED MEDICINE [Concomitant]
     Indication: HYPERTENSION
     Dosage: UNK
     Route: 065

REACTIONS (3)
  - Suicidal ideation [Recovered/Resolved]
  - Depression [Recovered/Resolved]
  - Headache [Recovered/Resolved]
